FAERS Safety Report 8385662 (Version 2)
Quarter: 2013Q2

REPORT INFORMATION
  Report Type: Spontaneous
  Country: US (occurrence: None)
  Receive Date: 20111221
  Receipt Date: 20121227
  Transmission Date: 20140414
  Serious: Yes (Other)
  Sender: FDA-Public Use
  Company Number: PHEH2011US03164

PATIENT
  Age: 37 Year
  Sex: Male
  Weight: 90.8 kg

DRUGS (1)
  1. EXJADE [Suspect]
     Indication: IRON OVERLOAD
     Dosage: 1750 MG, QD, ORAL
     Route: 048
     Dates: start: 20100914

REACTIONS (4)
  - SICKLE CELL ANAEMIA WITH CRISIS [None]
  - MALAISE [None]
  - Drug intolerance [None]
  - Diarrhoea [None]
